FAERS Safety Report 4469634-2 (Version None)
Quarter: 2004Q4

REPORT INFORMATION
  Report Type: 
  Country: None (occurrence: None)
  Receive Date: 20041005
  Receipt Date: 20040924
  Transmission Date: 20050328
  Serious: Yes (Other)
  Sender: FDA-Public Use
  Company Number: 200410492BFR

PATIENT

DRUGS (4)
  1. MOXIFLOXACIN HYDROCHLORIDE [Suspect]
     Indication: TUBERCULOSIS
     Dosage: 400 MG, TOTAL DAILY; ORAL
     Route: 048
  2. ETHAMBUTOL HCL [Concomitant]
  3. PIRILENE [Concomitant]
  4. AMIKACIN [Concomitant]

REACTIONS (1)
  - OPTIC NEURITIS RETROBULBAR [None]
